FAERS Safety Report 8152349-7 (Version None)
Quarter: 2012Q1

REPORT INFORMATION
  Report Type: 
  Country: None (occurrence: None)
  Receive Date: 20120214
  Receipt Date: 20120206
  Transmission Date: 20120608
  Serious: Yes (Death)
  Sender: FDA-Public Use
  Company Number: WAES 1202USA01115

PATIENT
  Age: 56 Year
  Sex: Male

DRUGS (2)
  1. CAP VORINOSTAT [Suspect]
     Indication: MYCOSIS FUNGOIDES
     Dosage: 300 MG/DAILY PO
     Route: 048
  2. GEMCITABINE [Suspect]

REACTIONS (3)
  - LYMPHOMA [None]
  - NEOPLASM PROGRESSION [None]
  - CARDIAC FAILURE [None]
